FAERS Safety Report 21713957 (Version 1)
Quarter: 2022Q4

REPORT INFORMATION
  Report Type: Spontaneous
  Country: US (occurrence: US)
  Receive Date: 20221212
  Receipt Date: 20221212
  Transmission Date: 20230113
  Serious: No
  Sender: FDA-Public Use
  Company Number: US-PFIZER INC-202201359012

PATIENT
  Age: 69 Year
  Sex: Male
  Weight: 85.28 kg

DRUGS (9)
  1. PAXLOVID [Suspect]
     Active Substance: NIRMATRELVIR\RITONAVIR
     Indication: COVID-19 treatment
     Dosage: 300MG STRENGTH, HE HAS ONLY TAKEN 2 DOSES
     Route: 048
     Dates: start: 20221205
  2. LOSARTAN POTASSIUM [Concomitant]
     Active Substance: LOSARTAN POTASSIUM
     Indication: Cardiac disorder
     Dosage: 12.5 MG, 1X/DAY (BEEN ON IT FOR ABOUT 5 YEARS)
     Route: 048
     Dates: start: 2017
  3. LOSARTAN POTASSIUM [Concomitant]
     Active Substance: LOSARTAN POTASSIUM
     Indication: Blood pressure abnormal
  4. METOPROLOL [Concomitant]
     Active Substance: METOPROLOL
     Indication: Heart rate abnormal
     Dosage: 25 MG, 1X/DAY
     Route: 048
  5. ASPIRIN [Concomitant]
     Active Substance: ASPIRIN
     Indication: Thrombosis prophylaxis
     Dosage: 325 MG, 1X/DAY (BEEN ON IT ABOUT 5 YEARS)
     Route: 048
     Dates: start: 2017
  6. ASPIRIN [Concomitant]
     Active Substance: ASPIRIN
     Indication: Myalgia
  7. VITAMIN D3 [Concomitant]
     Active Substance: CHOLECALCIFEROL
     Indication: Supplementation therapy
     Dosage: 2000 IU, 1X/DAY
     Dates: start: 2017
  8. VITAMIN D3 [Concomitant]
     Active Substance: CHOLECALCIFEROL
     Indication: Prophylaxis
  9. COENZYME Q10 [Concomitant]
     Active Substance: DIETARY SUPPLEMENT\UBIDECARENONE
     Indication: Muscle injury
     Dosage: 200 MG, 1X/DAY (BEEN ON IT ABOUT 5 YEARS)
     Dates: start: 2017

REACTIONS (3)
  - Abnormal faeces [Recovering/Resolving]
  - Anorectal discomfort [Recovering/Resolving]
  - Diarrhoea [Unknown]

NARRATIVE: CASE EVENT DATE: 20221206
